APPROVED DRUG PRODUCT: MONTELUKAST SODIUM
Active Ingredient: MONTELUKAST SODIUM
Strength: EQ 10MG BASE
Dosage Form/Route: TABLET;ORAL
Application: A205319 | Product #001
Applicant: BRECKENRIDGE PHARMACEUTICAL INC
Approved: Oct 30, 2020 | RLD: No | RS: No | Type: DISCN